FAERS Safety Report 24548707 (Version 1)
Quarter: 2024Q4

REPORT INFORMATION
  Report Type: Spontaneous
  Country: CN (occurrence: CN)
  Receive Date: 20241025
  Receipt Date: 20241025
  Transmission Date: 20250115
  Serious: Yes (Life-Threatening, Other)
  Sender: BAYER HEALTHCARE PHARMACEUTICALS INC.
  Company Number: CN-BAYER-2024A150735

PATIENT
  Age: 51 Year
  Sex: Male
  Weight: 65 kg

DRUGS (2)
  1. ULTRAVIST [Suspect]
     Active Substance: IOPROMIDE
     Indication: Oedema peripheral
     Dosage: 100 ML, ONCE
     Route: 042
     Dates: start: 20241014, end: 20241014
  2. ULTRAVIST [Suspect]
     Active Substance: IOPROMIDE
     Indication: Angiogram

REACTIONS (7)
  - Shock [Recovering/Resolving]
  - Loss of consciousness [Recovered/Resolved]
  - Cyanosis [None]
  - Blood pressure immeasurable [Recovering/Resolving]
  - Heart rate abnormal [Recovering/Resolving]
  - Vomiting [None]
  - Respiratory rate increased [None]

NARRATIVE: CASE EVENT DATE: 20241014
